FAERS Safety Report 25171296 (Version 1)
Quarter: 2025Q2

REPORT INFORMATION
  Report Type: Spontaneous
  Country: US (occurrence: US)
  Receive Date: 20250408
  Receipt Date: 20250408
  Transmission Date: 20250716
  Serious: No
  Sender: DR REDDYS
  Company Number: US-DRL-USA-USA/2025/03/004436

PATIENT
  Age: 60 Year
  Sex: Male
  Weight: 92.99 kg

DRUGS (1)
  1. DIFLUPREDNATE [Suspect]
     Active Substance: DIFLUPREDNATE
     Indication: Post procedural inflammation
     Route: 047

REACTIONS (3)
  - Eye irritation [Unknown]
  - Expired product administered [Unknown]
  - Product label issue [Unknown]
